FAERS Safety Report 9170637 (Version 1)
Quarter: 2013Q1

REPORT INFORMATION
  Report Type: Spontaneous
  Country: US (occurrence: None)
  Receive Date: 20130308
  Receipt Date: 20130308
  Transmission Date: 20140127
  Serious: Yes (Hospitalization)
  Sender: FDA-Public Use
  Company Number: 001488275A

PATIENT
  Age: 67 Year
  Sex: Female

DRUGS (3)
  1. ANTIOXIDANT DAY CREME SPF 20 [Suspect]
     Dosage: DERMAL
     Dates: start: 201301, end: 20130218
  2. MEANINGFUL BEAUTY CINDY CRAWFORD SKIN BRIGHTENING DECOLLETE AND NECK TREATMENT SPF 15 [Suspect]
     Dosage: DERMAL
     Dates: start: 201301, end: 20130218
  3. UNDISCLOSED MEDICATIONS [Concomitant]

REACTIONS (6)
  - Diabetes mellitus [None]
  - Renal failure [None]
  - Dialysis [None]
  - Skin exfoliation [None]
  - Rash generalised [None]
  - Erythema [None]
